FAERS Safety Report 7775703-1 (Version None)
Quarter: 2011Q3

REPORT INFORMATION
  Report Type: 
  Country: None (occurrence: None)
  Receive Date: 20110923
  Receipt Date: 20110914
  Transmission Date: 20111222
  Serious: Yes (Hospitalization)
  Sender: FDA-Public Use
  Company Number: FR-GLAXOSMITHKLINE-B0718367A

PATIENT
  Sex: Male

DRUGS (8)
  1. ADANCOR [Suspect]
     Indication: PRODUCT USED FOR UNKNOWN INDICATION
     Dosage: 20MG TWICE PER DAY
     Route: 048
     Dates: start: 20070101, end: 20110319
  2. PREVISCAN [Suspect]
     Indication: ATRIAL FIBRILLATION
     Dosage: 20MG UNKNOWN
     Route: 048
     Dates: start: 20070101, end: 20110320
  3. AVODART [Suspect]
     Indication: PRODUCT USED FOR UNKNOWN INDICATION
     Dosage: .5MG PER DAY
     Route: 048
     Dates: start: 20070101, end: 20110317
  4. PRAVASTATIN [Suspect]
     Indication: CARDIAC FAILURE
     Dosage: 40MG PER DAY
     Route: 048
     Dates: end: 20110318
  5. AMLODIPINE [Suspect]
     Indication: PRODUCT USED FOR UNKNOWN INDICATION
     Dosage: 5MG PER DAY
     Route: 048
     Dates: start: 20070101, end: 20110319
  6. OMEPRAZOLE [Suspect]
     Indication: PRODUCT USED FOR UNKNOWN INDICATION
     Dosage: 20MG PER DAY
     Route: 048
     Dates: start: 20070101, end: 20110317
  7. AUGMENTIN '125' [Concomitant]
     Indication: INFLUENZA
     Dosage: 1G TWICE PER DAY
     Route: 065
     Dates: start: 20110302
  8. ACETAMINOPHEN [Concomitant]
     Dates: start: 20110301

REACTIONS (17)
  - MYALGIA [None]
  - DYSPNOEA [None]
  - RASH MACULAR [None]
  - BODY TEMPERATURE DECREASED [None]
  - BLOOD GLUCOSE INCREASED [None]
  - CYANOSIS [None]
  - HAEMOLYSIS [None]
  - RHABDOMYOLYSIS [None]
  - ANXIETY [None]
  - ACIDOSIS [None]
  - RENAL FAILURE [None]
  - THROMBOCYTOPENIA [None]
  - ABDOMINAL PAIN [None]
  - PRODUCTIVE COUGH [None]
  - MALAISE [None]
  - AGITATION [None]
  - HYPERTENSION [None]
